FAERS Safety Report 24748103 (Version 1)
Quarter: 2024Q4

REPORT INFORMATION
  Report Type: Spontaneous
  Country: GB (occurrence: GB)
  Receive Date: 20241218
  Receipt Date: 20241218
  Transmission Date: 20250115
  Serious: Yes (Other)
  Sender: TEVA
  Company Number: None

PATIENT
  Age: 65 Year
  Sex: Male
  Weight: 89 kg

DRUGS (1)
  1. BICALUTAMIDE [Suspect]
     Active Substance: BICALUTAMIDE
     Indication: Product used for unknown indication
     Dosage: DAILY DOSE: 150MG DAILY
     Route: 065

REACTIONS (1)
  - Jaundice [Recovered/Resolved]

NARRATIVE: CASE EVENT DATE: 20240510
